FAERS Safety Report 10238996 (Version 1)
Quarter: 2014Q2

REPORT INFORMATION
  Report Type: Spontaneous
  Country: US (occurrence: None)
  Receive Date: 20140613
  Receipt Date: 20140613
  Transmission Date: 20141212
  Serious: No
  Sender: FDA-Public Use
  Company Number: None

PATIENT
  Age: 28 Year
  Sex: Female

DRUGS (5)
  1. NUVA RING [Suspect]
     Indication: CONTRACEPTION
     Dosage: 1 RING 1 Q3 WEEKS VAGINAL
     Route: 067
     Dates: start: 20140330, end: 20140612
  2. NUVA RING [Suspect]
     Indication: ENDOMETRIOSIS
     Dosage: 1 RING 1 Q3 WEEKS VAGINAL
     Route: 067
     Dates: start: 20140330, end: 20140612
  3. CALCIUM [Concomitant]
  4. MULTI VITAMIN [Concomitant]
  5. B COMPLEX VITAMINS [Concomitant]

REACTIONS (2)
  - Emotional disorder [None]
  - Depression [None]
